FAERS Safety Report 9314001 (Version 1)
Quarter: 2013Q2

REPORT INFORMATION
  Report Type: Spontaneous
  Country: US (occurrence: None)
  Receive Date: 20130524
  Receipt Date: 20130524
  Transmission Date: 20140414
  Serious: Yes (Other)
  Sender: FDA-Public Use
  Company Number: None

PATIENT
  Age: 36 Year
  Sex: Female
  Weight: 65.77 kg

DRUGS (1)
  1. FLECAINIDE [Suspect]
     Indication: VENTRICULAR TACHYCARDIA
     Dosage: 1 TAB
     Route: 048
     Dates: start: 20130418, end: 20130510

REACTIONS (4)
  - Heart rate irregular [None]
  - Drug ineffective [None]
  - Product substitution issue [None]
  - Product quality issue [None]
